FAERS Safety Report 9759047 (Version 1)
Quarter: 2013Q4

REPORT INFORMATION
  Report Type: Spontaneous
  Country: US (occurrence: None)
  Receive Date: 20131216
  Receipt Date: 20131216
  Transmission Date: 20140711
  Serious: Yes (Other)
  Sender: FDA-Public Use
  Company Number: 163-21880-12102115(0)

PATIENT
  Age: 69 Year
  Sex: Female
  Weight: 103 kg

DRUGS (1)
  1. REVLIMID [Suspect]
     Indication: PLASMA CELL MYELOMA
     Dosage: 10 MG, 21 IN 28 D, PO?15 MG, 1 IN 1 D. PO? ? ?

REACTIONS (5)
  - Blood iron decreased [None]
  - Weight increased [None]
  - Renal disorder [None]
  - Constipation [None]
  - Local swelling [None]
